FAERS Safety Report 7370032-2 (Version None)
Quarter: 2011Q1

REPORT INFORMATION
  Report Type: 
  Country: None (occurrence: None)
  Receive Date: 20110323
  Receipt Date: 20110309
  Transmission Date: 20110831
  Serious: Yes (Other)
  Sender: FDA-Public Use
  Company Number: PHEH2006US11689

PATIENT
  Sex: Female

DRUGS (2)
  1. ARIMIDEX [Concomitant]
     Dosage: UNK
     Dates: start: 20090127
  2. ZOMETA [Suspect]
     Dates: start: 20040101, end: 20050101

REACTIONS (15)
  - OSTEOARTHRITIS [None]
  - SYSTEMIC SCLEROSIS [None]
  - METASTASES TO BONE [None]
  - OSTEONECROSIS OF JAW [None]
  - INJURY [None]
  - GENERAL PHYSICAL HEALTH DETERIORATION [None]
  - VULVAL DISORDER [None]
  - SKIN ATROPHY [None]
  - PRURITUS GENITAL [None]
  - PAIN [None]
  - SPINAL OSTEOARTHRITIS [None]
  - METASTASES TO SPINE [None]
  - TOBACCO ABUSE [None]
  - DECREASED INTEREST [None]
  - BREAST CYST [None]
